FAERS Safety Report 21381592 (Version 1)
Quarter: 2022Q3

REPORT INFORMATION
  Report Type: Spontaneous
  Country: AU (occurrence: None)
  Receive Date: 20220927
  Receipt Date: 20220927
  Transmission Date: 20221027
  Serious: Yes (Other)
  Sender: FDA-Public Use
  Company Number: 2022A325063

PATIENT

DRUGS (2)
  1. GEFITINIB [Suspect]
     Active Substance: GEFITINIB
     Dosage: DOSE UNKNOWN
     Route: 048
  2. OSIMERTINIB [Concomitant]
     Active Substance: OSIMERTINIB
     Route: 065

REACTIONS (4)
  - Disease progression [Unknown]
  - Pleural effusion [Unknown]
  - Acquired gene mutation [Unknown]
  - Lymphangiosis carcinomatosa [Unknown]
